FAERS Safety Report 21185020 (Version 1)
Quarter: 2022Q3

REPORT INFORMATION
  Report Type: Spontaneous
  Country: US (occurrence: None)
  Receive Date: 20220807
  Receipt Date: 20220807
  Transmission Date: 20221027
  Serious: No
  Sender: FDA-Public Use
  Company Number: None

PATIENT
  Age: 55 Year
  Sex: Female
  Weight: 88.65 kg

DRUGS (10)
  1. ESTRADIOL / NORETHINDRONE ACETATE [Suspect]
     Active Substance: ESTRADIOL\NORETHINDRONE ACETATE
     Indication: Menopause
     Dosage: OTHER QUANTITY : 1 PATCH(ES);?OTHER FREQUENCY : EVERY 3-4 DAYS;?
     Route: 062
     Dates: start: 20220401, end: 20220726
  2. Lisinopril Rosuvstatin [Concomitant]
  3. VITAMIN D [Concomitant]
     Active Substance: VITAMIN D NOS
  4. MAGNESIUM [Concomitant]
     Active Substance: MAGNESIUM
  5. CALCIUM [Concomitant]
     Active Substance: CALCIUM
  6. FISH OIL [Concomitant]
     Active Substance: FISH OIL
  7. ZINC [Concomitant]
     Active Substance: ZINC
  8. GLUCOSAMINE [Concomitant]
     Active Substance: GLUCOSAMINE
  9. PROBIOTICS NOS [Concomitant]
     Active Substance: PROBIOTICS NOS
  10. VITAMIN B12 [Concomitant]
     Active Substance: CYANOCOBALAMIN

REACTIONS (3)
  - Rash erythematous [None]
  - Application site erythema [None]
  - Irritability [None]

NARRATIVE: CASE EVENT DATE: 20220626
